FAERS Safety Report 9784616 (Version 1)
Quarter: 2013Q4

REPORT INFORMATION
  Report Type: Spontaneous
  Country: US (occurrence: US)
  Receive Date: 20131226
  Receipt Date: 20131226
  Transmission Date: 20140711
  Serious: No
  Sender: FDA-Public Use
  Company Number: US-009507513-1312USA009988

PATIENT
  Age: 81 Year
  Sex: Female

DRUGS (1)
  1. AZASITE [Suspect]
     Indication: BLEPHARITIS
     Dosage: ONE DROP IN EACH EYE AND RUBBED INTO EYELIDS AT BEDTIME
     Route: 047
     Dates: start: 20131114

REACTIONS (1)
  - Drug ineffective [Not Recovered/Not Resolved]
